FAERS Safety Report 5584353-7 (Version None)
Quarter: 2008Q1

REPORT INFORMATION
  Report Type: 
  Country: None (occurrence: None)
  Receive Date: 20080108
  Receipt Date: 20080103
  Transmission Date: 20080703
  Serious: Yes (Life-Threatening)
  Sender: FDA-Public Use
  Company Number: GB-JNJFOC-20080100497

PATIENT
  Age: 72 Year
  Sex: Female

DRUGS (1)
  1. GALANTAMINE HYDROBROMIDE [Suspect]
     Indication: DEMENTIA ALZHEIMER'S TYPE
     Route: 048

REACTIONS (3)
  - GLOSSODYNIA [None]
  - SWOLLEN TONGUE [None]
  - TONGUE BLISTERING [None]
